FAERS Safety Report 6020134-8 (Version None)
Quarter: 2008Q4

REPORT INFORMATION
  Report Type: 
  Country: None (occurrence: None)
  Receive Date: 20081226
  Receipt Date: 20081215
  Transmission Date: 20090506
  Serious: Yes (Hospitalization)
  Sender: FDA-Public Use
  Company Number: US-BIOGENIDEC-2008BI034108

PATIENT
  Age: 40 Year
  Sex: Female
  Weight: 83 kg

DRUGS (1)
  1. TYSABRI [Suspect]
     Indication: MULTIPLE SCLEROSIS
     Route: 042
     Dates: start: 20080301, end: 20081101

REACTIONS (5)
  - CONVULSION [None]
  - DEPRESSED MOOD [None]
  - DIZZINESS [None]
  - FEELING ABNORMAL [None]
  - STRESS [None]
